FAERS Safety Report 22131553 (Version 1)
Quarter: 2023Q1

REPORT INFORMATION
  Report Type: Spontaneous
  Country: US (occurrence: US)
  Receive Date: 20230323
  Receipt Date: 20230323
  Transmission Date: 20230418
  Serious: No
  Sender: FDA-Public Use
  Company Number: US-ALLERGAN-2237502US

PATIENT
  Age: 22 Year
  Sex: Female
  Weight: 56.24 kg

DRUGS (3)
  1. IRON DEXTRAN [Suspect]
     Active Substance: IRON DEXTRAN
     Indication: Iron deficiency anaemia
     Dosage: 25 MG, SINGLE
     Route: 042
     Dates: start: 20221109, end: 20221109
  2. VITAMIN D2 [Concomitant]
     Active Substance: ERGOCALCIFEROL
     Indication: Vitamin supplementation
  3. MIRALAX [Concomitant]
     Active Substance: POLYETHYLENE GLYCOL 3350
     Indication: Product used for unknown indication

REACTIONS (2)
  - Chest pain [Recovered/Resolved]
  - Dyspnoea [Recovered/Resolved]

NARRATIVE: CASE EVENT DATE: 20221109
